FAERS Safety Report 7266261-9 (Version None)
Quarter: 2011Q1

REPORT INFORMATION
  Report Type: 
  Country: None (occurrence: None)
  Receive Date: 20110131
  Receipt Date: 20110117
  Transmission Date: 20110831
  Serious: Yes (Hospitalization)
  Sender: FDA-Public Use
  Company Number: US-ELI_LILLY_AND_COMPANY-US201101003926

PATIENT
  Sex: Female

DRUGS (13)
  1. ZYRTEC [Concomitant]
     Dosage: 10 MG, DAILY (1/D)
  2. NITROGLYCERIN [Concomitant]
     Dosage: 0.04 MG, UNK
  3. COMBIVENT [Concomitant]
     Dosage: UNK, AS NEEDED
  4. BRIMONIDINE [Concomitant]
     Dosage: 0.2 %,ONE DROP IN BOTH EYES TWICE DAILY
  5. VITAMIN D [Concomitant]
     Dosage: 90 MG, 3/D
  6. TAMOXIFEN CITRATE [Concomitant]
     Dates: end: 20110114
  7. ZETIA [Concomitant]
     Dosage: 10 MG, DAILY (1/D)
  8. RANITIDINE [Concomitant]
     Dosage: 150 MG, DAILY (1/D) AT BED TIME
  9. CITRACAL + D [Concomitant]
  10. SINGULAIR [Concomitant]
     Dosage: 10 MG, DAILY (1/D)
  11. TYLENOL-500 [Concomitant]
     Dosage: UNK, AS NEEDED
  12. FORTEO [Suspect]
     Indication: OSTEOPOROSIS
     Dosage: 20 UG, DAILY (1/D)
     Dates: start: 20110106, end: 20110113
  13. PRILOSEC [Concomitant]
     Dosage: 20 MG, DAILY (1/D)

REACTIONS (2)
  - SYNCOPE [None]
  - CONVULSION [None]
